FAERS Safety Report 22540939 (Version 5)
Quarter: 2024Q2

REPORT INFORMATION
  Report Type: Spontaneous
  Country: US (occurrence: US)
  Receive Date: 20230609
  Receipt Date: 20240628
  Transmission Date: 20240716
  Serious: Yes (Hospitalization)
  Sender: FDA-Public Use
  Company Number: US-PFIZER INC-PV202300101559

PATIENT
  Age: 84 Year
  Sex: Female
  Weight: 55.782 kg

DRUGS (6)
  1. OXBRYTA [Suspect]
     Active Substance: VOXELOTOR
     Indication: Sickle cell disease
     Dosage: 3 DF, 1X/DAY (3 TABLETS ONCE DAILY)
     Route: 048
     Dates: start: 202201
  2. OXBRYTA [Suspect]
     Active Substance: VOXELOTOR
     Dosage: 1500 MG, 1X/DAY (3 TABLETS ONCE DAILY)
     Route: 048
  3. OXBRYTA [Suspect]
     Active Substance: VOXELOTOR
     Dosage: 1500 MG, 1X/DAY (3 TABLETS BY MOUTH ONCE DAILY)
     Route: 048
  4. OXBRYTA [Suspect]
     Active Substance: VOXELOTOR
     Dosage: TAKE 3 TABLETS BY MOUTH 1X IN A DAY
     Route: 048
     Dates: start: 202108
  5. OXBRYTA [Suspect]
     Active Substance: VOXELOTOR
     Dosage: 1500 MG, 1X/DAY (3 TABLETS)
     Route: 048
  6. VELPHORO [Concomitant]
     Active Substance: SUCROFERRIC OXYHYDROXIDE
     Dosage: UNK
     Dates: start: 202108

REACTIONS (2)
  - Haemoglobin abnormal [Recovered/Resolved]
  - Frequent bowel movements [Not Recovered/Not Resolved]
